FAERS Safety Report 17361555 (Version 1)
Quarter: 2020Q1

REPORT INFORMATION
  Report Type: Spontaneous
  Country: US (occurrence: US)
  Receive Date: 20200203
  Receipt Date: 20200203
  Transmission Date: 20200409
  Serious: No
  Sender: FDA-Public Use
  Company Number: US-PFIZER INC-2020042685

PATIENT
  Sex: Female

DRUGS (1)
  1. PREMARIN [Suspect]
     Active Substance: ESTROGENS, CONJUGATED
     Dosage: 0.3 MG, UNK [ONLY TAKEN 2]
     Dates: start: 202001

REACTIONS (5)
  - Abdominal discomfort [Unknown]
  - Abdominal distension [Unknown]
  - Flatulence [Unknown]
  - Insomnia [Unknown]
  - Post-traumatic stress disorder [Unknown]
